FAERS Safety Report 6118946-5 (Version None)
Quarter: 2009Q1

REPORT INFORMATION
  Report Type: 
  Country: None (occurrence: None)
  Receive Date: 20090316
  Receipt Date: 20090212
  Transmission Date: 20090719
  Serious: No
  Sender: FDA-Public Use
  Company Number: US-BAYER-200913546NA

PATIENT
  Sex: Male

DRUGS (1)
  1. AVELOX [Suspect]
     Indication: PNEUMONIA PRIMARY ATYPICAL

REACTIONS (3)
  - ARTHRALGIA [None]
  - FEELING ABNORMAL [None]
  - PAIN IN EXTREMITY [None]
